FAERS Safety Report 5714723-5 (Version None)
Quarter: 2008Q2

REPORT INFORMATION
  Report Type: 
  Country: None (occurrence: None)
  Receive Date: 20080423
  Receipt Date: 19910211
  Transmission Date: 20081010
  Serious: Yes (Death)
  Sender: FDA-Public Use
  Company Number: CH-ROCHE-910100078001

PATIENT
  Age: 25 Year
  Sex: Female

DRUGS (3)
  1. FLUMAZENIL [Suspect]
     Route: 042
  2. NALOXONE [Suspect]
     Route: 065
  3. PHYSOSTIGMINE [Suspect]
     Route: 065

REACTIONS (1)
  - DEATH [None]
